FAERS Safety Report 23969624 (Version 2)
Quarter: 2024Q3

REPORT INFORMATION
  Report Type: Report from Study
  Country: CA (occurrence: CA)
  Receive Date: 20240613
  Receipt Date: 20240714
  Transmission Date: 20241016
  Serious: Yes (Death, Other)
  Sender: ABBVIE
  Company Number: CA-ABBVIE-5797847

PATIENT
  Age: 80 Year
  Sex: Female

DRUGS (2)
  1. VENCLEXTA [Suspect]
     Active Substance: VENETOCLAX
     Indication: Plasma cell myeloma
     Dosage: STOPPED IN 2024?FORM STRENGTH: 100MG
     Route: 048
     Dates: start: 20240522
  2. VENCLEXTA [Suspect]
     Active Substance: VENETOCLAX
     Indication: Plasma cell myeloma
     Route: 048

REACTIONS (3)
  - Death [Fatal]
  - Product use in unapproved indication [Unknown]
  - Surgery [Unknown]

NARRATIVE: CASE EVENT DATE: 20240101
